FAERS Safety Report 4452613-9 (Version None)
Quarter: 2004Q3

REPORT INFORMATION
  Report Type: 
  Country: None (occurrence: None)
  Receive Date: 20040916
  Receipt Date: 20040902
  Transmission Date: 20050211
  Serious: Yes (Other)
  Sender: FDA-Public Use
  Company Number: 2004062500

PATIENT
  Age: 44 Year
  Sex: Male

DRUGS (1)
  1. CEFOBID [Suspect]
     Indication: POSTOPERATIVE INFECTION
     Dosage: 2 GRAM (1 GRAM, 2 IN 1
     Dates: start: 20040830, end: 20040831

REACTIONS (1)
  - ANAPHYLACTIC REACTION [None]
